FAERS Safety Report 10585205 (Version 1)
Quarter: 2014Q4

REPORT INFORMATION
  Report Type: Report from Study
  Country: DK (occurrence: DE)
  Receive Date: 20141114
  Receipt Date: 20141114
  Transmission Date: 20150529
  Serious: Yes (Other)
  Sender: FDA-Public Use
  Company Number: DE-FRI-1000072300

PATIENT
  Sex: Female

DRUGS (6)
  1. QUILONUM RETARD [Suspect]
     Active Substance: LITHIUM CARBONATE
     Dosage: 675 MG
     Route: 048
     Dates: start: 20140710, end: 20140711
  2. ESCITALOPRAM [Suspect]
     Active Substance: ESCITALOPRAM OXALATE
     Dosage: 10 MG
     Route: 048
     Dates: start: 20140621
  3. QUILONUM RETARD [Suspect]
     Active Substance: LITHIUM CARBONATE
     Dates: start: 1991
  4. OLANZAPIN [Suspect]
     Active Substance: OLANZAPINE
     Dosage: 2.5 MG
     Route: 048
     Dates: start: 20140627, end: 20140715
  5. QUILONUM RETARD [Suspect]
     Active Substance: LITHIUM CARBONATE
     Dosage: 450 MG
     Route: 048
     Dates: start: 20140707, end: 20140709
  6. QUILONUM RETARD [Suspect]
     Active Substance: LITHIUM CARBONATE
     Dosage: 900 MG
     Route: 048
     Dates: start: 20140712

REACTIONS (3)
  - Oedema peripheral [Unknown]
  - Alopecia [Unknown]
  - Nocturia [Unknown]

NARRATIVE: CASE EVENT DATE: 20140707
